FAERS Safety Report 5717320-0 (Version None)
Quarter: 2008Q2

REPORT INFORMATION
  Report Type: 
  Country: None (occurrence: None)
  Receive Date: 20080424
  Receipt Date: 20080424
  Transmission Date: 20081010
  Serious: No
  Sender: FDA-Public Use
  Company Number: None

PATIENT
  Age: 32 Year
  Sex: Female
  Weight: 81.6475 kg

DRUGS (3)
  1. BUDEPRION 150 [Suspect]
     Indication: DEPRESSION
     Dosage: 150 MG TWICE DAILY PO
     Route: 048
     Dates: start: 20080104, end: 20080315
  2. ADVAIR DISKUS 250/50 [Concomitant]
  3. ORAL CONTRACEPTIVE [Concomitant]

REACTIONS (5)
  - DEPRESSION [None]
  - FEELING OF DESPAIR [None]
  - SUICIDAL IDEATION [None]
  - THERAPEUTIC RESPONSE UNEXPECTED WITH DRUG SUBSTITUTION [None]
  - TREMOR [None]
